FAERS Safety Report 4769787-2 (Version None)
Quarter: 2005Q3

REPORT INFORMATION
  Report Type: 
  Country: None (occurrence: None)
  Receive Date: 20050913
  Receipt Date: 20050901
  Transmission Date: 20060218
  Serious: Yes (Death, Hospitalization)
  Sender: FDA-Public Use
  Company Number: 2005086191

PATIENT
  Age: 45 Year
  Sex: Male

DRUGS (5)
  1. ZYVOX [Suspect]
     Indication: ENDOCARDITIS
     Dosage: 1200 MG (600 MG, BID), INTRAVENOUS
     Route: 042
     Dates: start: 20050408, end: 20050602
  2. AZACTAM [Suspect]
     Indication: ILL-DEFINED DISORDER
     Dosage: 6 GRAM (TID INTERVAL: EVERY DAY), INTRAVENOUS
     Route: 042
     Dates: start: 20050517, end: 20050526
  3. PANTOPRAZOLE SODIUM [Concomitant]
     Indication: ILL-DEFINED DISORDER
     Dates: start: 20050408, end: 20050602
  4. VANCOMYCIN [Suspect]
     Indication: ILL-DEFINED DISORDER
     Dosage: 1 GRAM (DAILY), INTRAVENOUS
     Route: 042
     Dates: start: 20050408, end: 20050602
  5. CANCIDAS (CASOFUNGIN ACETATE) [Concomitant]

REACTIONS (8)
  - CARNITINE DEFICIENCY [None]
  - HAEMORRHAGE [None]
  - HEPATIC FAILURE [None]
  - HEPATITIS FULMINANT [None]
  - LACTIC ACIDOSIS [None]
  - LUNG DISORDER [None]
  - METABOLIC ACIDOSIS [None]
  - SHOCK [None]
